FAERS Safety Report 6135000-7 (Version None)
Quarter: 2009Q1

REPORT INFORMATION
  Report Type: 
  Country: None (occurrence: None)
  Receive Date: 20090327
  Receipt Date: 20090316
  Transmission Date: 20090719
  Serious: Yes (Other)
  Sender: FDA-Public Use
  Company Number: FR-JNJFOC-20081205698

PATIENT
  Age: 51 Year
  Sex: Female
  Weight: 53 kg

DRUGS (7)
  1. REMICADE [Suspect]
     Indication: COLITIS ULCERATIVE
     Route: 042
  2. REMICADE [Suspect]
     Indication: ANKYLOSING SPONDYLITIS
     Route: 042
  3. PREDNISOLONE [Concomitant]
     Indication: COLITIS ULCERATIVE
     Route: 048
  4. PENTASA [Concomitant]
     Indication: COLITIS ULCERATIVE
     Route: 048
  5. NEXIUM [Concomitant]
     Indication: COLITIS ULCERATIVE
     Route: 048
  6. OROCAL D3 [Concomitant]
     Indication: OSTEOPOROSIS
     Dosage: 1G/800 IU PER DOSE
  7. BONIVA [Concomitant]
     Indication: OSTEOPOROSIS
     Dosage: 3 MG/3 ML
     Route: 042

REACTIONS (2)
  - HEPATIC ENZYME INCREASED [None]
  - IMMUNE SYSTEM DISORDER [None]
